FAERS Safety Report 5914720-0 (Version None)
Quarter: 2008Q4

REPORT INFORMATION
  Report Type: 
  Country: None (occurrence: None)
  Receive Date: 20081010
  Receipt Date: 20080909
  Transmission Date: 20090506
  Serious: No
  Sender: FDA-Public Use
  Company Number: US-BAYER-200833452NA

PATIENT
  Age: 32 Year
  Sex: Female

DRUGS (5)
  1. ULTRAVIST (PHARMACY BULK) [Suspect]
     Indication: COMPUTERISED TOMOGRAM ABDOMEN
     Dosage: TOTAL DAILY DOSE: 100 ML  UNIT DOSE: 500 ML
     Route: 042
     Dates: start: 20080909, end: 20080909
  2. CODEINE SUL TAB [Concomitant]
  3. IMITREX [Concomitant]
  4. LORTAB [Concomitant]
  5. ROCEPHIN [Concomitant]

REACTIONS (1)
  - PRURITUS [None]
